FAERS Safety Report 25348275 (Version 2)
Quarter: 2025Q3

REPORT INFORMATION
  Report Type: Spontaneous
  Country: US (occurrence: US)
  Receive Date: 20250522
  Receipt Date: 20250813
  Transmission Date: 20251021
  Serious: No
  Sender: BRISTOL-MYERS SQUIBB COMPANY
  Company Number: US-BRISTOL-MYERS SQUIBB COMPANY-2025-073604

PATIENT
  Age: 76 Year
  Sex: Female

DRUGS (2)
  1. POMALYST [Suspect]
     Active Substance: POMALIDOMIDE
     Indication: Plasma cell myeloma
     Route: 048
  2. POMALYST [Suspect]
     Active Substance: POMALIDOMIDE
     Dosage: FREQUENCY CYCLE - EVERY OTHER DAY FOR 28-DAY CYCLE.?EVERY OTHER DAY ON DAYS 1-21 THEN 7 DAYS OFF
     Route: 048

REACTIONS (2)
  - Adverse event [Unknown]
  - Product administration interrupted [Unknown]
